FAERS Safety Report 8000294-X (Version None)
Quarter: 2011Q4

REPORT INFORMATION
  Report Type: 
  Country: None (occurrence: None)
  Receive Date: 20111220
  Receipt Date: 20111220
  Transmission Date: 20120403
  Serious: No
  Sender: FDA-Public Use
  Company Number: None

PATIENT
  Sex: Male

DRUGS (1)
  1. JALYN [Suspect]

REACTIONS (2)
  - SPERM CONCENTRATION ZERO [None]
  - EJACULATION FAILURE [None]
